FAERS Safety Report 6520566-5 (Version None)
Quarter: 2009Q4

REPORT INFORMATION
  Report Type: 
  Country: None (occurrence: None)
  Receive Date: 20091229
  Receipt Date: 20091221
  Transmission Date: 20100525
  Serious: Yes (Death)
  Sender: FDA-Public Use
  Company Number: US-BAXTER-2009BH019594

PATIENT
  Age: 83 Year
  Sex: Female

DRUGS (3)
  1. DIANEAL [Suspect]
     Indication: PERITONEAL DIALYSIS
     Route: 033
     Dates: start: 20090930
  2. DIANEAL [Suspect]
     Indication: PERITONEAL DIALYSIS
     Route: 033
  3. ANTIBIOTICS [Suspect]
     Indication: URINARY TRACT INFECTION
     Route: 065

REACTIONS (2)
  - STEVENS-JOHNSON SYNDROME [None]
  - URINARY TRACT INFECTION [None]
